FAERS Safety Report 5097508-5 (Version None)
Quarter: 2006Q3

REPORT INFORMATION
  Report Type: 
  Country: None (occurrence: None)
  Receive Date: 20060901
  Receipt Date: 20060814
  Transmission Date: 20061208
  Serious: Yes (Death, Hospitalization)
  Sender: FDA-Public Use
  Company Number: HU200606004976

PATIENT
  Age: 50 Year
  Sex: Female

DRUGS (1)
  1. DULOXETINE HYDROCHLORIDE (DULOXETINE HYDROCHLORIDE)CAPSULE [Suspect]
     Indication: MAJOR DEPRESSION
     Dosage: 30 MG, DAILY (1/D), ORAL
     Route: 048
     Dates: start: 20060620, end: 20060621

REACTIONS (12)
  - BRADYCARDIA [None]
  - BRAIN STEM SYNDROME [None]
  - CARDIAC DISORDER [None]
  - COMPUTERISED TOMOGRAM ABNORMAL [None]
  - CONDITION AGGRAVATED [None]
  - HYPOTONIA [None]
  - LOCKED-IN SYNDROME [None]
  - MIOSIS [None]
  - MULTIPLE DRUG OVERDOSE INTENTIONAL [None]
  - SALIVARY HYPERSECRETION [None]
  - SUICIDE ATTEMPT [None]
  - TREMOR [None]
